FAERS Safety Report 13602273 (Version 1)
Quarter: 2017Q2

REPORT INFORMATION
  Report Type: Spontaneous
  Country: TW (occurrence: TW)
  Receive Date: 20170601
  Receipt Date: 20170601
  Transmission Date: 20170830
  Serious: Yes (Other)
  Sender: FDA-Public Use
  Company Number: TW-PFIZER INC-2017236607

PATIENT
  Age: 24 Year
  Sex: Female

DRUGS (1)
  1. KETAMINE HCL [Suspect]
     Active Substance: KETAMINE HYDROCHLORIDE
     Dosage: UNK

REACTIONS (4)
  - Ureteritis [Unknown]
  - Hydronephrosis [Unknown]
  - Bladder hypertrophy [Unknown]
  - Drug use disorder [Unknown]
